FAERS Safety Report 15654377 (Version 3)
Quarter: 2019Q1

REPORT INFORMATION
  Report Type: Report from Study
  Country: None (occurrence: US)
  Receive Date: 20181126
  Receipt Date: 20190214
  Transmission Date: 20190417
  Serious: Yes (Hospitalization, Other)
  Sender: FDA-Public Use
  Company Number: US-ABBVIE-18K-163-2565638-00

PATIENT
  Age: 62 Year
  Sex: Male

DRUGS (2)
  1. VENCLEXTA [Suspect]
     Active Substance: VENETOCLAX
     Indication: CHRONIC LYMPHOCYTIC LEUKAEMIA
     Route: 048
     Dates: start: 20180828, end: 20181022
  2. VENCLEXTA [Suspect]
     Active Substance: VENETOCLAX
     Route: 048
     Dates: start: 201902

REACTIONS (21)
  - Haematoma [Recovering/Resolving]
  - Fatigue [Not Recovered/Not Resolved]
  - Fluid overload [Unknown]
  - Feeling abnormal [Unknown]
  - Adverse drug reaction [Recovered/Resolved]
  - Pollakiuria [Not Recovered/Not Resolved]
  - Post procedural constipation [Recovering/Resolving]
  - Incision site haemorrhage [Unknown]
  - Prostatomegaly [Recovering/Resolving]
  - Urinary straining [Recovering/Resolving]
  - Fatigue [Recovered/Resolved]
  - Genital swelling [Not Recovered/Not Resolved]
  - Urinary retention [Not Recovered/Not Resolved]
  - Weight decreased [Not Recovered/Not Resolved]
  - Pyrexia [Recovered/Resolved]
  - Penile oedema [Unknown]
  - Hernia [Recovering/Resolving]
  - Fluid retention [Unknown]
  - Muscle spasms [Recovered/Resolved]
  - Post procedural complication [Not Recovered/Not Resolved]
  - Haemorrhage [Recovering/Resolving]

NARRATIVE: CASE EVENT DATE: 2018
